FAERS Safety Report 18550893 (Version 2)
Quarter: 2020Q4

REPORT INFORMATION
  Report Type: Report from Study
  Country: US (occurrence: US)
  Receive Date: 20201126
  Receipt Date: 20201214
  Transmission Date: 20210114
  Serious: Yes (Hospitalization, Other)
  Sender: FDA-Public Use
  Company Number: US-JNJFOC-A-NJ2018-175098

PATIENT
  Age: 66 Year
  Sex: Female
  Weight: 77.18 kg

DRUGS (12)
  1. VELETRI [Suspect]
     Active Substance: EPOPROSTENOL
     Dosage: 20.5 NG/KG, PER MIN
     Route: 042
  2. ADCIRCA [Concomitant]
     Active Substance: TADALAFIL
  3. VELETRI [Suspect]
     Active Substance: EPOPROSTENOL
     Dosage: 27.3 NG/KG, PER MIN
     Route: 042
  4. VELETRI [Suspect]
     Active Substance: EPOPROSTENOL
     Dosage: 8 NG/KG, PER MIN
     Route: 042
     Dates: start: 20180715, end: 20180718
  5. VELETRI [Suspect]
     Active Substance: EPOPROSTENOL
     Dosage: 9 NG/KG, PER MIN
     Route: 042
  6. VELETRI [Suspect]
     Active Substance: EPOPROSTENOL
     Indication: PULMONARY HYPERTENSION
     Dosage: 6 NG/KG, PER MIN
     Route: 042
     Dates: start: 20180620
  7. VELETRI [Suspect]
     Active Substance: EPOPROSTENOL
     Dosage: 15 UNK
     Route: 042
  8. VELETRI [Suspect]
     Active Substance: EPOPROSTENOL
     Dosage: 12 NG/KG, PER MIN
     Route: 042
  9. VELETRI [Suspect]
     Active Substance: EPOPROSTENOL
     Dosage: 4 NG/KG/MIN
     Route: 042
  10. OPSUMIT [Concomitant]
     Active Substance: MACITENTAN
     Indication: PULMONARY HYPERTENSION
  11. VELETRI [Suspect]
     Active Substance: EPOPROSTENOL
     Dosage: 7 NG/KG, PER MIN
     Route: 042
     Dates: start: 20180719
  12. VELETRI [Suspect]
     Active Substance: EPOPROSTENOL
     Dosage: 36 NG/KG, PER MIN
     Route: 042

REACTIONS (30)
  - Pruritus [Not Recovered/Not Resolved]
  - Therapeutic response decreased [Unknown]
  - Muscle spasms [Unknown]
  - Device leakage [Recovered/Resolved]
  - Flushing [Not Recovered/Not Resolved]
  - Sinusitis [Not Recovered/Not Resolved]
  - Nasal congestion [Not Recovered/Not Resolved]
  - Pain [Not Recovered/Not Resolved]
  - Neuropathy peripheral [Not Recovered/Not Resolved]
  - Headache [Not Recovered/Not Resolved]
  - Catheter site erythema [Unknown]
  - Gastrectomy [Unknown]
  - Metabolic surgery [Unknown]
  - Nausea [Unknown]
  - Diarrhoea [Not Recovered/Not Resolved]
  - Malaise [Unknown]
  - Influenza [Unknown]
  - Blood potassium decreased [Unknown]
  - Vomiting [Unknown]
  - Back pain [Unknown]
  - Pain in extremity [Recovering/Resolving]
  - Nasopharyngitis [Unknown]
  - Hot flush [Unknown]
  - Rash [Not Recovered/Not Resolved]
  - Catheter management [Recovered/Resolved]
  - Abdominal pain [Unknown]
  - Pain in jaw [Not Recovered/Not Resolved]
  - Catheter site pruritus [Unknown]
  - Neuralgia [Not Recovered/Not Resolved]
  - Weight decreased [Unknown]

NARRATIVE: CASE EVENT DATE: 20180626
